FAERS Safety Report 6649374-1 (Version None)
Quarter: 2010Q1

REPORT INFORMATION
  Report Type: 
  Country: None (occurrence: None)
  Receive Date: 20100324
  Receipt Date: 20100312
  Transmission Date: 20100710
  Serious: Yes (Hospitalization)
  Sender: FDA-Public Use
  Company Number: NL-PFIZER INC-2010019916

PATIENT
  Age: 79 Year
  Sex: Female
  Weight: 60 kg

DRUGS (16)
  1. DEPO-MEDROL [Suspect]
     Indication: ASTHMA PROPHYLAXIS
     Dosage: 24 MG, UNK
     Route: 042
     Dates: start: 20100216
  2. DEPO-MEDROL [Suspect]
     Indication: CHRONIC OBSTRUCTIVE PULMONARY DISEASE
  3. ACTONEL [Concomitant]
     Indication: OSTEOPOROSIS
     Dosage: UNK
     Route: 048
     Dates: start: 20050203
  4. AMLODIPINE/VALSARTAN [Concomitant]
     Indication: BLOOD PRESSURE
     Dosage: UNK
     Route: 048
     Dates: start: 20100221
  5. IMOVANE [Concomitant]
     Indication: SLEEP DISORDER
     Dosage: UNK
     Route: 048
     Dates: start: 19940810
  6. LANTUS [Concomitant]
     Indication: DIABETES MELLITUS
     Dosage: UNK
     Dates: start: 20040628
  7. MOVICOLON [Concomitant]
     Indication: BOWEL MOVEMENT IRREGULARITY
     Dosage: UNK
     Route: 048
     Dates: start: 20020701
  8. NEBILET [Concomitant]
     Indication: BLOOD PRESSURE
     Dosage: UNK
     Route: 048
     Dates: start: 20060321
  9. NOVORAPID [Concomitant]
     Indication: DIABETES MELLITUS
     Dosage: UNK
     Dates: start: 20040628
  10. OXAZEPAM [Concomitant]
     Indication: SEDATIVE THERAPY
     Dosage: UNK
     Route: 048
     Dates: start: 19940815
  11. PLAVIX [Concomitant]
     Indication: ANTICOAGULANT THERAPY
     Dosage: UNK
     Dates: start: 20020208
  12. PREDNISOLON [Concomitant]
     Dosage: UNK
     Dates: start: 20020627
  13. PULMICORT [Concomitant]
     Indication: LUNG DISORDER
     Dosage: UNK
     Dates: start: 19960206
  14. RANITIDINE [Concomitant]
     Indication: ABDOMINAL DISCOMFORT
     Dosage: UNK
     Route: 048
     Dates: start: 19940930
  15. SELEKTINE [Concomitant]
     Indication: BLOOD CHOLESTEROL
     Dosage: UNK
     Route: 048
     Dates: start: 20020226
  16. TAMBOCOR [Concomitant]
     Indication: CARDIAC DISORDER
     Dosage: UNK
     Route: 048
     Dates: start: 20050923

REACTIONS (2)
  - DYSPNOEA [None]
  - INCORRECT ROUTE OF DRUG ADMINISTRATION [None]
